FAERS Safety Report 19714935 (Version 1)
Quarter: 2021Q3

REPORT INFORMATION
  Report Type: Spontaneous
  Country: US (occurrence: US)
  Receive Date: 20210818
  Receipt Date: 20210818
  Transmission Date: 20211014
  Serious: No
  Sender: FDA-Public Use
  Company Number: US-ORGANON-O2108USA001184

PATIENT
  Sex: Female

DRUGS (10)
  1. HCG [Concomitant]
     Active Substance: GONADOTROPHIN, CHORIONIC
     Dosage: UNK
  2. PROGESTERONE. [Concomitant]
     Active Substance: PROGESTERONE
     Dosage: UNK
  3. FOLLISTIM AQ [Suspect]
     Active Substance: FOLLITROPIN
     Indication: INFERTILITY FEMALE
     Dosage: 300 INTERNATIONAL UNIT, 1 X / 10 DAYS (STRENGTH WAS REPORTED AS 300 IU/0.36 ML)
     Route: 058
     Dates: start: 20210630
  4. LETROZOLE. [Concomitant]
     Active Substance: LETROZOLE
     Dosage: UNK
  5. DROSPIRENONE;ETHINYLESTRADIOL;LEVOMEFOLIC ACID [Concomitant]
     Active Substance: DROSPIRENONE\ETHINYL ESTRADIOL\LEVOMEFOLATE CALCIUM
     Dosage: UNK
  6. PROGESTERONE IN OIL [Concomitant]
     Active Substance: PROGESTERONE
     Dosage: UNK
  7. LEVOTHYROXIN [Concomitant]
     Active Substance: LEVOTHYROXINE
     Dosage: UNK
  8. MENOPUR [Concomitant]
     Active Substance: FOLLITROPIN\LUTEINIZING HORMONE
     Dosage: UNK
  9. GANIRELIX [Concomitant]
     Active Substance: GANIRELIX
     Dosage: UNK
  10. SCOPOLAMINE DCI [Concomitant]
     Dosage: UNK

REACTIONS (2)
  - Abdominal distension [Unknown]
  - Headache [Unknown]
